FAERS Safety Report 10037111 (Version 1)
Quarter: 2014Q1

REPORT INFORMATION
  Report Type: Spontaneous
  Country: US (occurrence: None)
  Receive Date: 20140325
  Receipt Date: 20140325
  Transmission Date: 20141002
  Serious: Yes (Other)
  Sender: FDA-Public Use
  Company Number: None

PATIENT
  Age: 73 Year
  Sex: Female
  Weight: 63.5 kg

DRUGS (7)
  1. PRAVASTATIN [Suspect]
     Indication: BLOOD CHOLESTEROL
     Route: 048
     Dates: start: 20140224, end: 20140227
  2. OMEPRAZOLE [Concomitant]
  3. ULTRAM [Concomitant]
  4. PRAVASTATIN [Concomitant]
  5. FAMOTIDINE [Concomitant]
  6. HYDROCODON [Concomitant]
  7. ACET 5-325 [Concomitant]

REACTIONS (1)
  - Headache [None]
